FAERS Safety Report 17552757 (Version 1)
Quarter: 2020Q1

REPORT INFORMATION
  Report Type: Spontaneous
  Country: US (occurrence: US)
  Receive Date: 20200310
  Receipt Date: 20200310
  Transmission Date: 20200409
  Serious: No
  Sender: FDA-Public Use
  Company Number: None

PATIENT
  Age: 56 Year
  Sex: Female

DRUGS (1)
  1. ORENCIA [Suspect]
     Active Substance: ABATACEPT
     Route: 040
     Dates: start: 201710

REACTIONS (5)
  - Ill-defined disorder [None]
  - Therapy cessation [None]
  - Upper respiratory tract infection [None]
  - Sinusitis [None]
  - Dysphonia [None]

NARRATIVE: CASE EVENT DATE: 20200310
